FAERS Safety Report 4902992-0 (Version None)
Quarter: 2006Q1

REPORT INFORMATION
  Report Type: 
  Country: None (occurrence: None)
  Receive Date: 20060207
  Receipt Date: 20051222
  Transmission Date: 20060701
  Serious: Yes (Hospitalization)
  Sender: FDA-Public Use
  Company Number: GR-MERCK-0512GRC00008

PATIENT
  Age: 90 Year
  Sex: Male

DRUGS (6)
  1. PROSCAR [Suspect]
     Indication: BENIGN PROSTATIC HYPERPLASIA
     Route: 048
     Dates: start: 19950101, end: 20051001
  2. FUROSEMIDE [Concomitant]
     Route: 048
  3. DIGOXIN [Concomitant]
     Route: 048
  4. ACENOCOUMAROL [Concomitant]
     Route: 048
  5. VASOTEC RPD [Concomitant]
     Route: 048
     Dates: start: 20000101
  6. RANITIDINE HYDROCHLORIDE [Concomitant]
     Route: 048

REACTIONS (3)
  - AORTIC ANEURYSM REPAIR [None]
  - AORTIC VALVE REPLACEMENT [None]
  - GYNAECOMASTIA [None]
